FAERS Safety Report 14145110 (Version 2)
Quarter: 2017Q4

REPORT INFORMATION
  Report Type: Spontaneous
  Country: US (occurrence: US)
  Receive Date: 20171031
  Receipt Date: 20171107
  Transmission Date: 20180321
  Serious: Yes (Hospitalization, Other)
  Sender: FDA-Public Use
  Company Number: US-BAYER-2017-209033

PATIENT
  Sex: Female

DRUGS (1)
  1. MIRENA [Suspect]
     Active Substance: LEVONORGESTREL
     Dosage: 20 MCG/24HR, CONT
     Route: 015
     Dates: start: 20110304, end: 20141029

REACTIONS (7)
  - Depression [None]
  - Infertility female [None]
  - Procedural pain [Not Recovered/Not Resolved]
  - Uterine perforation [None]
  - Device issue [None]
  - Device dislocation [None]
  - Salpingectomy [None]

NARRATIVE: CASE EVENT DATE: 2011
